FAERS Safety Report 12391215 (Version 1)
Quarter: 2016Q2

REPORT INFORMATION
  Report Type: Spontaneous
  Country: FI (occurrence: FI)
  Receive Date: 20160520
  Receipt Date: 20160520
  Transmission Date: 20160815
  Serious: Yes (Hospitalization, Other)
  Sender: FDA-Public Use
  Company Number: FI-ASTRAZENECA-2016SE51552

PATIENT
  Age: 25388 Day
  Sex: Male

DRUGS (16)
  1. BRILIQUE [Suspect]
     Active Substance: TICAGRELOR
     Indication: CORONARY ARTERY BYPASS
     Route: 048
     Dates: start: 20151004, end: 20151005
  2. PLAVIX [Concomitant]
     Active Substance: CLOPIDOGREL BISULFATE
     Dosage: 600MG
  3. NEXIUM [Concomitant]
     Active Substance: ESOMEPRAZOLE MAGNESIUM
     Dosage: 40 MG
  4. ASA [Concomitant]
     Active Substance: ASPIRIN
     Dosage: 250MG
  5. NORVASC [Concomitant]
     Active Substance: AMLODIPINE BESYLATE
     Route: 048
  6. PARAMAX FORTE [Concomitant]
     Route: 048
  7. BRILIQUE [Suspect]
     Active Substance: TICAGRELOR
     Indication: ACUTE MYOCARDIAL INFARCTION
     Route: 048
     Dates: start: 20151004, end: 20151005
  8. BRILIQUE [Suspect]
     Active Substance: TICAGRELOR
     Indication: CORONARY ARTERY BYPASS
     Route: 048
     Dates: start: 20151012, end: 20151013
  9. ATORVASTATIN [Concomitant]
     Active Substance: ATORVASTATIN
     Route: 048
  10. SOMAC [Concomitant]
     Active Substance: PANTOPRAZOLE SODIUM
     Dosage: 40MG 1X2 IV IN HOSPITAL.
  11. BRILIQUE [Suspect]
     Active Substance: TICAGRELOR
     Indication: ACUTE MYOCARDIAL INFARCTION
     Route: 048
     Dates: start: 20151012, end: 20151013
  12. PRIMASPAN [Concomitant]
     Active Substance: ASPIRIN
     Dosage: 100 MG
  13. KLEXANE [Concomitant]
     Active Substance: ENOXAPARIN
     Dosage: 1 MG/KG
  14. BISOPROLOL [Concomitant]
     Active Substance: BISOPROLOL
     Route: 048
  15. CORDARONE [Concomitant]
     Active Substance: AMIODARONE HYDROCHLORIDE
     Route: 048
     Dates: end: 20151012
  16. COVERSYL NOVUM [Concomitant]
     Active Substance: PERINDOPRIL
     Route: 048

REACTIONS (3)
  - Asthenia [Unknown]
  - Melaena [Unknown]
  - Gastric ulcer haemorrhage [Unknown]

NARRATIVE: CASE EVENT DATE: 20151013
